FAERS Safety Report 17878818 (Version 1)
Quarter: 2020Q2

REPORT INFORMATION
  Report Type: Spontaneous
  Country: CA (occurrence: CA)
  Receive Date: 20200610
  Receipt Date: 20200610
  Transmission Date: 20200714
  Serious: Yes (Other)
  Sender: FDA-Public Use
  Company Number: CA-TEVA-2020-CA-1246395

PATIENT
  Age: 67 Year
  Sex: Female

DRUGS (6)
  1. HYDROXYCHLOROQUINE [Concomitant]
     Active Substance: HYDROXYCHLOROQUINE
     Dosage: 200 MILLIGRAM DAILY;
  2. FOLIC ACID. [Concomitant]
     Active Substance: FOLIC ACID
  3. VARICELLA ZOSTER VACCINE LIVE [Concomitant]
     Active Substance: VARICELLA-ZOSTER VIRUS STRAIN OKA/MERCK LIVE ANTIGEN
  4. METHOTREXATE. [Suspect]
     Active Substance: METHOTREXATE
     Indication: PRODUCT USED FOR UNKNOWN INDICATION
     Route: 058
  5. PREDNISONE. [Concomitant]
     Active Substance: PREDNISONE
  6. NAPROXEN. [Concomitant]
     Active Substance: NAPROXEN
     Indication: PAIN
     Dosage: 750 MILLIGRAM DAILY;

REACTIONS (7)
  - Oropharyngeal discomfort [Unknown]
  - Therapeutic product effect incomplete [Unknown]
  - Back pain [Unknown]
  - Asthenia [Unknown]
  - Off label use [Unknown]
  - Asthma [Unknown]
  - Nasopharyngitis [Unknown]
